FAERS Safety Report 17833859 (Version 1)
Quarter: 2020Q2

REPORT INFORMATION
  Report Type: Spontaneous
  Country: US (occurrence: US)
  Receive Date: 20200528
  Receipt Date: 20200528
  Transmission Date: 20200714
  Serious: Yes (Other)
  Sender: FDA-Public Use
  Company Number: None

PATIENT
  Age: 78 Year
  Sex: Male
  Weight: 88.5 kg

DRUGS (1)
  1. REMDESIVIR. [Suspect]
     Active Substance: REMDESIVIR
     Indication: COVID-19
     Dosage: ?          OTHER FREQUENCY:ONCE (LOADING DOSE;?
     Route: 042
     Dates: start: 20200523, end: 20200523

REACTIONS (6)
  - Palpitations [None]
  - Tremor [None]
  - Ventricular tachycardia [None]
  - Lethargy [None]
  - Disturbance in attention [None]
  - Oxygen saturation decreased [None]

NARRATIVE: CASE EVENT DATE: 20200523
